FAERS Safety Report 6824748-4 (Version None)
Quarter: 2010Q3

REPORT INFORMATION
  Report Type: 
  Country: None (occurrence: None)
  Receive Date: 20100708
  Receipt Date: 20061115
  Transmission Date: 20110219
  Serious: No
  Sender: FDA-Public Use
  Company Number: US-PFIZER INC-2006143251

PATIENT
  Sex: Female
  Weight: 59.87 kg

DRUGS (4)
  1. CHANTIX [Suspect]
     Indication: EX-TOBACCO USER
     Dates: start: 20061111
  2. ZOLOFT [Concomitant]
  3. ESTROGENS [Concomitant]
  4. VALIUM [Concomitant]

REACTIONS (2)
  - INSOMNIA [None]
  - NAUSEA [None]
